FAERS Safety Report 21621745 (Version 2)
Quarter: 2022Q4

REPORT INFORMATION
  Report Type: Report from Study
  Country: US (occurrence: US)
  Receive Date: 20221121
  Receipt Date: 20221227
  Transmission Date: 20230113
  Serious: Yes (Other)
  Sender: FDA-Public Use
  Company Number: US-MYLANLABS-2022M1127741

PATIENT
  Age: 59 Year
  Sex: Female
  Weight: 57.4 kg

DRUGS (8)
  1. SILDENAFIL [Suspect]
     Active Substance: SILDENAFIL
     Indication: Product used for unknown indication
     Dosage: UNK
     Route: 065
  2. AMBRISENTAN [Suspect]
     Active Substance: AMBRISENTAN
     Indication: Pulmonary arterial hypertension
     Dosage: 10 MILLIGRAM, QD START DATE 28-JUL-2022
     Route: 048
  3. ORENITRAM [Suspect]
     Active Substance: TREPROSTINIL
     Indication: Pulmonary arterial hypertension
     Dosage: 0.125 MILLIGRAM, Q8H START DATE 19-AUG-2022
     Route: 048
  4. ORENITRAM [Suspect]
     Active Substance: TREPROSTINIL
     Dosage: 0.25 MILLIGRAM, Q8H
     Route: 048
  5. ORENITRAM [Suspect]
     Active Substance: TREPROSTINIL
     Dosage: 0.375 MILLIGRAM, Q8H
     Route: 048
  6. ORENITRAM [Suspect]
     Active Substance: TREPROSTINIL
     Dosage: UNK, START DATE: 19-AUG-2022
     Route: 048
  7. MIDODRINE HYDROCHLORIDE [Suspect]
     Active Substance: MIDODRINE HYDROCHLORIDE
     Indication: Hypotension
     Dosage: 5 MILLIGRAM, TID
     Route: 065
  8. MIDODRINE HYDROCHLORIDE [Suspect]
     Active Substance: MIDODRINE HYDROCHLORIDE
     Dosage: 10 MILLIGRAM, TID
     Route: 065

REACTIONS (20)
  - Cataract [Unknown]
  - Hepatic mass [Unknown]
  - Post procedural complication [Unknown]
  - Blood pressure decreased [Unknown]
  - Dehydration [Recovered/Resolved]
  - Dyspnoea [Unknown]
  - Pain [Unknown]
  - Limb discomfort [Not Recovered/Not Resolved]
  - Nausea [Unknown]
  - Diarrhoea [Not Recovered/Not Resolved]
  - Headache [Unknown]
  - Malaise [Recovered/Resolved]
  - Fatigue [Unknown]
  - Hypotension [Unknown]
  - Dizziness [Recovered/Resolved]
  - Nausea [Unknown]
  - Vision blurred [Recovered/Resolved]
  - Decreased appetite [Unknown]
  - Colitis [Unknown]
  - Intentional dose omission [Unknown]

NARRATIVE: CASE EVENT DATE: 20220101
